FAERS Safety Report 18078174 (Version 1)
Quarter: 2020Q3

REPORT INFORMATION
  Report Type: Spontaneous
  Country: US (occurrence: US)
  Receive Date: 20200727
  Receipt Date: 20200727
  Transmission Date: 20201103
  Serious: No
  Sender: FDA-Public Use
  Company Number: None

PATIENT
  Age: 70 Year
  Sex: Female
  Weight: 78.3 kg

DRUGS (9)
  1. K?TAB [Concomitant]
     Active Substance: POTASSIUM CHLORIDE
  2. LETROZOLE. [Concomitant]
     Active Substance: LETROZOLE
  3. ACETAMINOPHEN PM [Concomitant]
     Active Substance: ACETAMINOPHEN\DIPHENHYDRAMINE HYDROCHLORIDE
  4. MULTIVITAMIN ADULTS [Concomitant]
  5. LEVOTHYROXINE SODIUM. [Concomitant]
     Active Substance: LEVOTHYROXINE SODIUM
  6. IRBESARTAN. [Concomitant]
     Active Substance: IRBESARTAN
  7. IBRANCE [Suspect]
     Active Substance: PALBOCICLIB
     Indication: NEOPLASM MALIGNANT
     Route: 048
  8. DILTIAZEM CD [Concomitant]
     Active Substance: DILTIAZEM
  9. TURMERIC [Concomitant]
     Active Substance: HERBALS\TURMERIC

REACTIONS (1)
  - White blood cell count decreased [None]

NARRATIVE: CASE EVENT DATE: 20200727
